FAERS Safety Report 9171936 (Version 1)
Quarter: 2013Q1

REPORT INFORMATION
  Report Type: Spontaneous
  Country: US (occurrence: US)
  Receive Date: 20130319
  Receipt Date: 20130319
  Transmission Date: 20140127
  Serious: Yes (Hospitalization)
  Sender: FDA-Public Use
  Company Number: US-BAYER-2013-033294

PATIENT
  Age: 30 Year
  Sex: Female
  Weight: 67.6 kg

DRUGS (16)
  1. YAZ [Suspect]
  2. BEYAZ [Suspect]
  3. SINGULAIR [Concomitant]
     Indication: ASTHMA
     Dosage: 10 MG,DAILY
     Route: 048
     Dates: start: 20110818
  4. FLOVENT [Concomitant]
     Indication: ASTHMA
     Dosage: 2 PUFF(S), BID
     Route: 045
     Dates: start: 20110818
  5. VERAMYST [Concomitant]
     Indication: ASTHMA
     Dosage: DAILY
     Dates: start: 20110818
  6. ZYRTEC [Concomitant]
     Indication: ASTHMA
     Dosage: 10 MG, DAILY
     Route: 048
     Dates: start: 20110818
  7. SOMA [Concomitant]
     Indication: SLEEP DISORDER
     Dosage: UNK,PRN
     Route: 048
     Dates: start: 20110818
  8. VALIUM [Concomitant]
     Indication: ANXIETY
  9. VALIUM [Concomitant]
     Indication: ANXIETY
  10. VALIUM [Concomitant]
     Indication: ANXIETY
  11. WARFARIN [Concomitant]
  12. METOCLOPRAMID [Concomitant]
  13. ALBUTEROL [Concomitant]
  14. CARISOPRODOL [Concomitant]
  15. DIAZEPAM [Concomitant]
  16. REGLAN [Concomitant]

REACTIONS (2)
  - Deep vein thrombosis [Recovered/Resolved]
  - Pulmonary embolism [None]
